FAERS Safety Report 7646452-5 (Version None)
Quarter: 2011Q3

REPORT INFORMATION
  Report Type: 
  Country: None (occurrence: None)
  Receive Date: 20110801
  Receipt Date: 20110721
  Transmission Date: 20111222
  Serious: Yes (Hospitalization)
  Sender: FDA-Public Use
  Company Number: SE-JNJFOC-20110705175

PATIENT
  Sex: Female

DRUGS (3)
  1. ATARAX [Suspect]
     Indication: ANXIETY
     Route: 048
     Dates: start: 20110511, end: 20110511
  2. IBUPROFEN [Suspect]
     Indication: BACK PAIN
     Route: 048
     Dates: start: 20110511, end: 20110511
  3. ALPRAZOLAM [Suspect]
     Indication: ANXIETY
     Route: 048
     Dates: start: 20110511, end: 20110511

REACTIONS (4)
  - FATIGUE [None]
  - ACIDOSIS [None]
  - DYSARTHRIA [None]
  - INCORRECT DOSE ADMINISTERED [None]
